FAERS Safety Report 9831096 (Version 2)
Quarter: 2014Q2

REPORT INFORMATION
  Report Type: Report from Study
  Country: CA (occurrence: CA)
  Receive Date: 20140120
  Receipt Date: 20140602
  Transmission Date: 20141212
  Serious: Yes (Other)
  Sender: FDA-Public Use
  Company Number: CA-ROCHE-1335114

PATIENT
  Sex: Female
  Weight: 60 kg

DRUGS (7)
  1. ACTEMRA [Suspect]
     Indication: RHEUMATOID ARTHRITIS
     Route: 042
     Dates: start: 20120224
  2. ACTEMRA [Suspect]
     Route: 042
  3. ACTEMRA [Suspect]
     Route: 042
     Dates: start: 20130708
  4. METHOTREXATE [Concomitant]
  5. CELEBREX [Concomitant]
  6. FOLIC ACID [Concomitant]
  7. PANTOPRAZOLE [Concomitant]

REACTIONS (2)
  - Cataract operation [Unknown]
  - Weight decreased [Unknown]
